FAERS Safety Report 7274843-3 (Version None)
Quarter: 2011Q1

REPORT INFORMATION
  Report Type: 
  Country: None (occurrence: None)
  Receive Date: 20110202
  Receipt Date: 20110202
  Transmission Date: 20110831
  Serious: Yes (Life-Threatening)
  Sender: FDA-Public Use
  Company Number: None

PATIENT
  Age: 68 Year
  Sex: Female
  Weight: 89.8122 kg

DRUGS (1)
  1. PAXIL [Suspect]
     Indication: POST-TRAUMATIC STRESS DISORDER
     Dosage: 37.5MG ONCE A DAY PO
     Route: 048
     Dates: start: 20010101, end: 20100101

REACTIONS (5)
  - PHYSICAL PRODUCT LABEL ISSUE [None]
  - PRODUCT COLOUR ISSUE [None]
  - PALPITATIONS [None]
  - NAUSEA [None]
  - FORMICATION [None]
